FAERS Safety Report 10013512 (Version 2)
Quarter: 2014Q1

REPORT INFORMATION
  Report Type: Spontaneous
  Country: US (occurrence: US)
  Receive Date: 20140314
  Receipt Date: 20140314
  Transmission Date: 20141002
  Serious: Yes (Disabling)
  Sender: FDA-Public Use
  Company Number: US-GE HEALTHCARE MEDICAL DIAGNOSTICS-OSCN-PR-0901S-0017

PATIENT
  Age: 39 Year
  Sex: Female

DRUGS (23)
  1. OMNISCAN [Suspect]
     Indication: HEADACHE
     Route: 042
     Dates: start: 20070331, end: 20070331
  2. OMNISCAN [Suspect]
     Indication: ASTHENIA
  3. OMNISCAN [Suspect]
     Indication: PHOTOPHOBIA
  4. OMNISCAN [Suspect]
     Indication: NAUSEA
  5. OMNISCAN [Suspect]
     Indication: PARAESTHESIA
  6. COUMADIN [Concomitant]
     Indication: PULMONARY EMBOLISM
  7. DURAGESIC [Concomitant]
     Indication: BACK PAIN
     Route: 062
  8. EPOGEN [Concomitant]
     Indication: ANAEMIA
  9. PROCRIT [Concomitant]
     Indication: ANAEMIA
  10. AMBIEN [Concomitant]
     Indication: PRODUCT USED FOR UNKNOWN INDICATION
     Dates: start: 2004, end: 2008
  11. CARISOPRODOL [Concomitant]
     Indication: PRODUCT USED FOR UNKNOWN INDICATION
     Dates: start: 2003, end: 2007
  12. CLONAZEPAM [Concomitant]
     Indication: PRODUCT USED FOR UNKNOWN INDICATION
     Dates: start: 2003, end: 2008
  13. COZAAR [Concomitant]
     Indication: PRODUCT USED FOR UNKNOWN INDICATION
     Dates: start: 2006, end: 2007
  14. FOSRENOL [Concomitant]
     Indication: PRODUCT USED FOR UNKNOWN INDICATION
     Dates: start: 2007, end: 2008
  15. PERCOCET [Concomitant]
     Indication: PRODUCT USED FOR UNKNOWN INDICATION
     Dates: start: 2008, end: 2008
  16. ENDOCET [Concomitant]
     Indication: PRODUCT USED FOR UNKNOWN INDICATION
     Dates: start: 2000, end: 2008
  17. PREDNISONE [Concomitant]
     Indication: PRODUCT USED FOR UNKNOWN INDICATION
     Dates: start: 2000
  18. PREDNISONE [Concomitant]
     Dates: start: 2004
  19. PREDNISONE [Concomitant]
     Dates: start: 2007, end: 2008
  20. VANCOMYCIN [Concomitant]
     Indication: PRODUCT USED FOR UNKNOWN INDICATION
     Dates: start: 2005
  21. VANCOMYCIN [Concomitant]
     Dates: start: 2007
  22. VANCOMYCIN [Concomitant]
     Dates: start: 2008
  23. VENOFER [Concomitant]
     Indication: PRODUCT USED FOR UNKNOWN INDICATION
     Dates: start: 2004, end: 2008

REACTIONS (1)
  - Nephrogenic systemic fibrosis [Not Recovered/Not Resolved]
